FAERS Safety Report 5869629-8 (Version None)
Quarter: 2008Q3

REPORT INFORMATION
  Report Type: 
  Country: None (occurrence: None)
  Receive Date: 20080904
  Receipt Date: 20080215
  Transmission Date: 20090109
  Serious: No
  Sender: FDA-Public Use
  Company Number: US-KINGPHARMUSA00001-K200800212

PATIENT

DRUGS (3)
  1. CYTOMEL [Suspect]
     Indication: HYPOTHYROIDISM
     Dosage: 15 MCG, QD
     Route: 048
     Dates: start: 20030101
  2. LEVOXYL [Concomitant]
     Dosage: 125 MCG, QD
     Route: 048
  3. VITAMIN TAB [Concomitant]

REACTIONS (3)
  - DRUG INEFFECTIVE [None]
  - FEELING ABNORMAL [None]
  - HYPERSENSITIVITY [None]
